FAERS Safety Report 14347231 (Version 1)
Quarter: 2018Q1

REPORT INFORMATION
  Report Type: Spontaneous
  Country: US (occurrence: US)
  Receive Date: 20180102
  Receipt Date: 20180102
  Transmission Date: 20180509
  Serious: Yes (Other)
  Sender: FDA-Public Use
  Company Number: None

PATIENT
  Age: 77 Year
  Sex: Female
  Weight: 72 kg

DRUGS (1)
  1. AMLODIPINE TABLETS 10MG [Suspect]
     Active Substance: AMLODIPINE BESYLATE
     Indication: HYPERTENSION
     Dosage: ?          QUANTITY:90 TABLET(S);?
     Route: 048
     Dates: start: 20171001

REACTIONS (3)
  - Musculoskeletal disorder [None]
  - Middle insomnia [None]
  - Thirst [None]

NARRATIVE: CASE EVENT DATE: 20171201
